FAERS Safety Report 5869685-7 (Version None)
Quarter: 2008Q3

REPORT INFORMATION
  Report Type: 
  Country: None (occurrence: None)
  Receive Date: 20080829
  Receipt Date: 20080725
  Transmission Date: 20090109
  Serious: No
  Sender: FDA-Public Use
  Company Number: US024199

PATIENT
  Sex: Female

DRUGS (4)
  1. FENTORA [Suspect]
     Indication: ARTHRALGIA
     Dosage: 800 UG BUCCAL
     Route: 002
  2. FENTORA [Suspect]
     Indication: CROHN'S DISEASE
     Dosage: 800 UG BUCCAL
     Route: 002
  3. ACTIQ [Concomitant]
  4. FENTANYL [Concomitant]

REACTIONS (1)
  - DRUG PRESCRIBING ERROR [None]
